FAERS Safety Report 7373445-8 (Version None)
Quarter: 2011Q1

REPORT INFORMATION
  Report Type: 
  Country: None (occurrence: None)
  Receive Date: 20110325
  Receipt Date: 20110316
  Transmission Date: 20110831
  Serious: Yes (Death, Hospitalization)
  Sender: FDA-Public Use
  Company Number: DE-BIOGENIDEC-2011BI002508

PATIENT
  Age: 28 Year
  Sex: Female
  Weight: 68 kg

DRUGS (3)
  1. ANTIPYRETIC PAINKILLER [Concomitant]
     Indication: PROPHYLAXIS
  2. AVONEX [Suspect]
     Indication: RELAPSING-REMITTING MULTIPLE SCLEROSIS
     Route: 030
     Dates: start: 20041201, end: 20100101
  3. CONTRACEPTIVE [Concomitant]
     Indication: CONTRACEPTION

REACTIONS (1)
  - ANAPLASTIC ASTROCYTOMA [None]
